FAERS Safety Report 9440207 (Version 1)
Quarter: 2013Q3

REPORT INFORMATION
  Report Type: Spontaneous
  Country: GB (occurrence: GB)
  Receive Date: 20130805
  Receipt Date: 20130805
  Transmission Date: 20140515
  Serious: Yes (Other)
  Sender: FDA-Public Use
  Company Number: PHFR2013GB002737

PATIENT
  Age: 68 Year
  Sex: Male
  Weight: 103.6 kg

DRUGS (10)
  1. CLOZARIL [Suspect]
     Indication: SCHIZOPHRENIA
     Dosage: UNK
     Route: 048
     Dates: start: 20091215
  2. CLOZARIL [Suspect]
     Dosage: 500 MG, (100 MG IN MORNING AND 350 MG NIGHT TO 150 MG MORNING THEN 350 MG NIGHT)
     Route: 048
     Dates: start: 20130320
  3. CLOZARIL [Suspect]
     Dosage: 650 MG, (350 MG AND 150 MG BID)
     Route: 048
     Dates: start: 20130509
  4. CLOZARIL [Suspect]
     Dosage: 350 MG, DAILY
     Route: 048
  5. CLOZARIL [Suspect]
     Dosage: 500 MG, DAILY
     Route: 048
  6. LACTULOSE [Concomitant]
     Indication: CONSTIPATION
     Dosage: 20 ML, QD
     Route: 048
  7. LANSOPRAZOLE [Concomitant]
     Indication: GASTROINTESTINAL DISORDER
     Dosage: 30 MG, QD
     Route: 048
  8. HYOSCINE HYDROBROMIDE [Concomitant]
     Indication: SALIVARY HYPERSECRETION
     Dosage: 300 UG, QD
     Route: 048
  9. UNSPECIFIED INGREDIENT [Concomitant]
     Indication: CONSTIPATION
     Dosage: TWICE WEEKLY
     Route: 054
     Dates: start: 20130709
  10. SERETIDE [Concomitant]
     Indication: ASTHMA
     Dosage: BID DAILY

REACTIONS (1)
  - Incorrect dose administered [Recovered/Resolved]
